FAERS Safety Report 17407884 (Version 1)
Quarter: 2020Q1

REPORT INFORMATION
  Report Type: Spontaneous
  Country: US (occurrence: US)
  Receive Date: 20200212
  Receipt Date: 20200212
  Transmission Date: 20200409
  Serious: Yes (Hospitalization)
  Sender: FDA-Public Use
  Company Number: US-HORIZON-KRY-0170-2020

PATIENT
  Age: 50 Year
  Sex: Male

DRUGS (5)
  1. AMLODIPINE [Concomitant]
     Active Substance: AMLODIPINE BESYLATE
  2. CARVEDILOL. [Concomitant]
     Active Substance: CARVEDILOL
  3. METHOTREXATE. [Concomitant]
     Active Substance: METHOTREXATE
  4. PEGLOTICASE [Suspect]
     Active Substance: PEGLOTICASE
     Indication: GOUT
  5. ASPIRIN. [Concomitant]
     Active Substance: ASPIRIN

REACTIONS (2)
  - Glucose-6-phosphate dehydrogenase deficiency [Recovered/Resolved]
  - Contraindicated product administered [Unknown]
